FAERS Safety Report 8841703 (Version 1)
Quarter: 2012Q4

REPORT INFORMATION
  Report Type: Spontaneous
  Country: US (occurrence: None)
  Receive Date: 20121011
  Receipt Date: 20121011
  Transmission Date: 20130627
  Serious: No
  Sender: FDA-Public Use
  Company Number: 2012GMK003912

PATIENT
  Sex: Female

DRUGS (1)
  1. NORGESTIMATE AND ETHINYL ESTRADIOL [Suspect]
     Indication: DRUG USE  FOR UNKNOWN INDICATION
     Dosage: Unk , Oral
     Route: 048

REACTIONS (4)
  - Pregnancy on oral contraceptive [None]
  - Maternal exposure during pregnancy [None]
  - Drug ineffective [None]
  - Product label issue [None]
